FAERS Safety Report 9457766 (Version 2)
Quarter: 2013Q3

REPORT INFORMATION
  Report Type: Spontaneous
  Country: JP (occurrence: JP)
  Receive Date: 20130814
  Receipt Date: 20130830
  Transmission Date: 20140515
  Serious: Yes (Disabling)
  Sender: FDA-Public Use
  Company Number: JP-JNJFOC-20130804805

PATIENT
  Age: 38 Year
  Sex: Female

DRUGS (2)
  1. FINIBAX [Suspect]
     Indication: MENINGITIS
     Route: 041
     Dates: start: 20130724, end: 20130806
  2. VICCLOX [Suspect]
     Indication: MENINGITIS
     Route: 041
     Dates: end: 20130806

REACTIONS (1)
  - Renal failure acute [Not Recovered/Not Resolved]
